FAERS Safety Report 4307607-0 (Version None)
Quarter: 2004Q1

REPORT INFORMATION
  Report Type: 
  Country: None (occurrence: None)
  Receive Date: 20040227
  Receipt Date: 20040227
  Transmission Date: 20041129
  Serious: Yes (Other)
  Sender: FDA-Public Use
  Company Number: None

PATIENT
  Age: 66 Year
  Sex: Male
  Weight: 68.0396 kg

DRUGS (3)
  1. OXALIPLATIN [Suspect]
     Indication: RECTAL CANCER METASTATIC
     Dosage: 85 MG/M2 Q 14 DAYS INTRAVENOUS
     Route: 042
     Dates: start: 20040210, end: 20040225
  2. FLUOROURACIL [Concomitant]
  3. LEUCOVORIN [Concomitant]

REACTIONS (4)
  - DYSARTHRIA [None]
  - HOARSENESS [None]
  - PARAESTHESIA [None]
  - SENSATION OF HEAVINESS [None]
